FAERS Safety Report 7966119-3 (Version None)
Quarter: 2011Q4

REPORT INFORMATION
  Report Type: 
  Country: None (occurrence: None)
  Receive Date: 20111208
  Receipt Date: 20111201
  Transmission Date: 20120403
  Serious: Yes (Hospitalization, Other)
  Sender: FDA-Public Use
  Company Number: US-BRISTOL-MYERS SQUIBB COMPANY-16208233

PATIENT
  Age: 59 Year
  Sex: Male

DRUGS (3)
  1. BELATACEPT [Suspect]
     Indication: RENAL TRANSPLANT
     Dosage: INTERRUPTED ON 22SEP11
     Route: 042
     Dates: start: 20070411
  2. PREDNISONE TAB [Suspect]
     Indication: RENAL TRANSPLANT
     Dates: start: 20090609
  3. IMURAN [Concomitant]
     Dates: start: 20100804

REACTIONS (7)
  - BACTERAEMIA [None]
  - LOCALISED INFECTION [None]
  - TRANSPLANT FAILURE [None]
  - SEPSIS [None]
  - PNEUMONIA [None]
  - AZOTAEMIA [None]
  - ANTIBIOTIC RESISTANT STAPHYLOCOCCUS TEST POSITIVE [None]
